FAERS Safety Report 14372106 (Version 3)
Quarter: 2018Q2

REPORT INFORMATION
  Report Type: Spontaneous
  Country: US (occurrence: US)
  Receive Date: 20180110
  Receipt Date: 20180404
  Transmission Date: 20180711
  Serious: No
  Sender: FDA-Public Use
  Company Number: US-TEVA-2017-US-838516

PATIENT
  Age: 60 Year
  Sex: Female

DRUGS (1)
  1. ESTRADIOL VAGINAL INSERTS [Suspect]
     Active Substance: ESTRADIOL
     Route: 067

REACTIONS (3)
  - Vaginal erosion [Recovered/Resolved]
  - Device issue [Unknown]
  - Scratch [Unknown]

NARRATIVE: CASE EVENT DATE: 20171215
